FAERS Safety Report 15524094 (Version 2)
Quarter: 2019Q2

REPORT INFORMATION
  Report Type: Report from Study
  Country: US (occurrence: US)
  Receive Date: 20181018
  Receipt Date: 20190514
  Transmission Date: 20190711
  Serious: Yes (Other)
  Sender: FDA-Public Use
  Company Number: US-TAKEDA-2018TUS001984

PATIENT
  Sex: Male

DRUGS (2)
  1. PONATINIB [Suspect]
     Active Substance: PONATINIB
     Dosage: 30 MG, QD
     Route: 048
  2. PONATINIB [Suspect]
     Active Substance: PONATINIB
     Indication: CHRONIC MYELOID LEUKAEMIA
     Dosage: 45 MG, QD
     Route: 048
     Dates: start: 20171230

REACTIONS (12)
  - Hydronephrosis [Unknown]
  - Red blood cell count decreased [Unknown]
  - Back pain [Unknown]
  - Lymphocyte count decreased [Unknown]
  - Vertigo [Unknown]
  - White blood cell count increased [Unknown]
  - Insomnia [Unknown]
  - Anxiety [Unknown]
  - Skin hyperpigmentation [Unknown]
  - Depression [Unknown]
  - Neoplasm progression [Unknown]
  - White blood cell count decreased [Unknown]
